FAERS Safety Report 12699933 (Version 1)
Quarter: 2016Q3

REPORT INFORMATION
  Report Type: Spontaneous
  Country: US (occurrence: US)
  Receive Date: 20160830
  Receipt Date: 20160830
  Transmission Date: 20161109
  Serious: Yes (Other)
  Sender: FDA-Public Use
  Company Number: US-JNJFOC-20160819004

PATIENT

DRUGS (21)
  1. GENTAMICIN. [Concomitant]
     Active Substance: GENTAMICIN
     Dosage: TAKE 2 DROPS 4 TIMED A DAY
     Route: 047
  2. MAGNESIUM OXIDE. [Concomitant]
     Active Substance: MAGNESIUM OXIDE
     Dosage: 241.3 MG ELEMENTAL MAGNESIUM
     Route: 048
  3. XANAX [Concomitant]
     Active Substance: ALPRAZOLAM
     Indication: ANXIETY
     Route: 048
  4. SPIRIVA [Concomitant]
     Active Substance: TIOTROPIUM BROMIDE MONOHYDRATE
     Route: 055
  5. INSULIN LISPRO [Concomitant]
     Active Substance: INSULIN LISPRO
     Dosage: BEFORE MEALS
     Route: 065
  6. INSULIN GLARGINE [Concomitant]
     Active Substance: INSULIN GLARGINE
     Dosage: 100IU/ML; INJECT 45 UINTS QHS AT BED TIME
     Route: 058
  7. LIRAGLUTIDE [Concomitant]
     Active Substance: LIRAGLUTIDE
     Dosage: 18MG/ML
     Route: 058
  8. CEFALEXIN [Concomitant]
     Active Substance: CEPHALEXIN
     Dosage: FOR 10 DAYS
     Route: 048
  9. METOLAZONE. [Concomitant]
     Active Substance: METOLAZONE
     Indication: FLUID RETENTION
     Dosage: UP TO THRICE DAILY AS NEEDED FOR FLUID (TAKE 30 MINUTES BEFORE LASIX
     Route: 048
  10. SINGULAIR [Concomitant]
     Active Substance: MONTELUKAST SODIUM
     Dosage: EVERY DAY AFTER NOON
     Route: 048
  11. AMITIZA [Concomitant]
     Active Substance: LUBIPROSTONE
     Route: 048
  12. ROFLUMILAST [Concomitant]
     Active Substance: ROFLUMILAST
     Route: 048
  13. LOVASTATIN. [Concomitant]
     Active Substance: LOVASTATIN
     Indication: BLOOD CHOLESTEROL
     Route: 048
  14. NEURONTIN [Concomitant]
     Active Substance: GABAPENTIN
     Indication: PAIN
     Route: 048
  15. POTASSIUM CHLORIDE. [Concomitant]
     Active Substance: POTASSIUM CHLORIDE
     Dosage: BID TO TID WITH LASIX
     Route: 048
  16. SYNTHROID [Concomitant]
     Active Substance: LEVOTHYROXINE SODIUM
     Route: 048
  17. TIKOSYN [Concomitant]
     Active Substance: DOFETILIDE
     Route: 048
  18. XARELTO [Suspect]
     Active Substance: RIVAROXABAN
     Indication: ANTICOAGULANT THERAPY
     Dosage: EVERY DAY AFTER NOON
     Route: 048
  19. ERGOCALCIFEROL. [Concomitant]
     Active Substance: ERGOCALCIFEROL
     Route: 048
  20. LASIX [Concomitant]
     Active Substance: FUROSEMIDE
     Indication: SWELLING
     Dosage: MAY INCREASE FROM TWICE DAILY TO THRICE DAILY IF NEEDE FOR SWELING
     Route: 048
  21. LISINOPRIL. [Concomitant]
     Active Substance: LISINOPRIL
     Route: 048

REACTIONS (2)
  - Cellulitis orbital [Unknown]
  - Eye allergy [Unknown]

NARRATIVE: CASE EVENT DATE: 20151229
